FAERS Safety Report 16920218 (Version 1)
Quarter: 2019Q4

REPORT INFORMATION
  Report Type: Spontaneous
  Country: US (occurrence: US)
  Receive Date: 20191015
  Receipt Date: 20191015
  Transmission Date: 20200122
  Serious: No
  Sender: FDA-Public Use
  Company Number: None

PATIENT
  Age: 30 Year
  Sex: Female

DRUGS (1)
  1. SANDIMMUNE [Suspect]
     Active Substance: CYCLOSPORINE
     Dates: start: 20191011, end: 20191015

REACTIONS (5)
  - Heart rate increased [None]
  - Faeces hard [None]
  - Dizziness [None]
  - Fatigue [None]
  - Malaise [None]

NARRATIVE: CASE EVENT DATE: 20191011
